FAERS Safety Report 8553721 (Version 2)
Quarter: 2013Q2

REPORT INFORMATION
  Report Type: Report from Study
  Country: DE (occurrence: DE)
  Receive Date: 20120509
  Receipt Date: 20130417
  Transmission Date: 20140414
  Serious: Yes (Hospitalization)
  Sender: FDA-Public Use
  Company Number: DE-ABBOTT-12P-062-0932622-00

PATIENT
  Sex: Female

DRUGS (2)
  1. HUMIRA 40 MG/ 0.8 ML PRE-FILLED SYRINGE [Suspect]
     Indication: PSORIASIS
     Route: 058
     Dates: start: 20090101
  2. METHOTREXATE [Concomitant]
     Indication: PSORIASIS
     Dates: start: 20120406

REACTIONS (6)
  - Gait disturbance [Recovering/Resolving]
  - Psoriasis [Not Recovered/Not Resolved]
  - Dyshidrotic eczema [Unknown]
  - Pustular psoriasis [Unknown]
  - Drug effect decreased [Unknown]
  - Psoriatic arthropathy [Unknown]
